APPROVED DRUG PRODUCT: ELOCON
Active Ingredient: MOMETASONE FUROATE
Strength: 0.1% **Federal Register determination that product was not discontinued or withdrawn for safety or effectiveness reasons**
Dosage Form/Route: CREAM;TOPICAL
Application: N019625 | Product #002
Applicant: ORGANON LLC A SUB OF ORGANON AND CO
Approved: Apr 19, 2013 | RLD: Yes | RS: No | Type: DISCN